FAERS Safety Report 18215278 (Version 1)
Quarter: 2020Q3

REPORT INFORMATION
  Report Type: Spontaneous
  Country: US (occurrence: US)
  Receive Date: 20200831
  Receipt Date: 20200831
  Transmission Date: 20201103
  Serious: Yes (Other)
  Sender: FDA-Public Use
  Company Number: US-PURDUE-USA-2020-0163913

PATIENT
  Sex: Male

DRUGS (2)
  1. OXYCONTIN [Suspect]
     Active Substance: OXYCODONE HYDROCHLORIDE
     Indication: PRODUCT USED FOR UNKNOWN INDICATION
     Route: 048
  2. DILAUDID [Suspect]
     Active Substance: HYDROMORPHONE HYDROCHLORIDE
     Indication: PRODUCT USED FOR UNKNOWN INDICATION
     Route: 048

REACTIONS (7)
  - Drug dependence [Unknown]
  - Back injury [Unknown]
  - Hand fracture [Unknown]
  - Fall [Recovered/Resolved with Sequelae]
  - Emotional distress [Unknown]
  - Drug withdrawal syndrome [Unknown]
  - Unevaluable event [Unknown]

NARRATIVE: CASE EVENT DATE: 2015
